FAERS Safety Report 8480294-6 (Version None)
Quarter: 2012Q2

REPORT INFORMATION
  Report Type: 
  Country: None (occurrence: None)
  Receive Date: 20120629
  Receipt Date: 20120618
  Transmission Date: 20120825
  Serious: No
  Sender: FDA-Public Use
  Company Number: US-ASTRAZENECA-2012SE41221

PATIENT
  Age: 72 Year
  Sex: Male
  Weight: 77.1 kg

DRUGS (4)
  1. ALLERGY SHOT [Concomitant]
  2. NEXIUM [Suspect]
     Indication: GASTROOESOPHAGEAL REFLUX DISEASE
     Route: 048
     Dates: start: 20050101
  3. LUMIGAN [Concomitant]
     Indication: GLAUCOMA
  4. ACYCLOVIR [Concomitant]
     Indication: HERPES VIRUS INFECTION

REACTIONS (3)
  - BARRETT'S OESOPHAGUS [None]
  - OSTEOPENIA [None]
  - INTENTIONAL DRUG MISUSE [None]
